FAERS Safety Report 8777988 (Version 1)
Quarter: 2012Q4

REPORT INFORMATION
  Report Type: 
  Country: US (occurrence: US)
  Receive Date: 20120911
  Receipt Date: 20120911
  Transmission Date: 20130627
  Serious: No
  Sender: FDA-Public Use
  Company Number: US-PFIZER INC-2012221502

PATIENT
  Age: 71 Year
  Sex: Male
  Weight: 97.96 kg

DRUGS (6)
  1. SUTENT [Suspect]
     Indication: METASTATIC RENAL CELL CARCINOMA
     Dosage: 50 mg, daily
     Dates: start: 20120730, end: 20120820
  2. SUTENT [Suspect]
     Dosage: 50 mg, daily
     Dates: start: 20120821, end: 20120831
  3. VITAMIN C [Concomitant]
     Dosage: 500 mg, daily
  4. SIMVASTATIN [Concomitant]
     Indication: BLOOD CHOLESTEROL INCREASED
     Dosage: 40 mg, daily
  5. OMEPRAZOLE [Concomitant]
     Indication: GASTROOESOPHAGEAL REFLUX DISEASE
     Dosage: 40 mg, daily
  6. GLIMEPIRIDE [Concomitant]
     Indication: DIABETES MELLITUS
     Dosage: 2 mg, 2x/day

REACTIONS (1)
  - Hyperkalaemia [Recovered/Resolved]
